FAERS Safety Report 6080664-X (Version None)
Quarter: 2009Q1

REPORT INFORMATION
  Report Type: 
  Country: None (occurrence: None)
  Receive Date: 20090217
  Receipt Date: 20090213
  Transmission Date: 20090719
  Serious: Yes (Hospitalization, Disabling)
  Sender: FDA-Public Use
  Company Number: DK-BRISTOL-MYERS SQUIBB COMPANY-14505614

PATIENT
  Age: 36 Year
  Sex: Male

DRUGS (9)
  1. ETOPOSIDE [Suspect]
     Indication: NON-HODGKIN'S LYMPHOMA
     Dosage: WAS ALSO TAKEN IN 1999.
     Dates: start: 19980811, end: 19981204
  2. CYCLOPHOSPHAMIDE [Suspect]
     Indication: NON-HODGKIN'S LYMPHOMA
     Dates: start: 19980811, end: 19981204
  3. IFOSFAMIDE [Suspect]
     Indication: NON-HODGKIN'S LYMPHOMA
     Dosage: WAS ALSO TAKEN IN 1999.
     Dates: start: 19980811, end: 19981204
  4. VINCRISTINE SULFATE [Suspect]
     Indication: NON-HODGKIN'S LYMPHOMA
     Dates: start: 19980811, end: 19981204
  5. ADRIAMYCIN PFS [Suspect]
     Indication: NON-HODGKIN'S LYMPHOMA
     Dates: start: 19980811, end: 19981204
  6. METHOTREXATE [Suspect]
     Indication: NON-HODGKIN'S LYMPHOMA
     Dosage: WAS ALSO TAKEN IN 1999.
     Dates: start: 19980811, end: 19981204
  7. CYTARABINE [Suspect]
     Indication: NON-HODGKIN'S LYMPHOMA
     Dosage: WAS ALSO TAKEN IN 1999.
     Dates: start: 19980811, end: 19981204
  8. SOLU-MEDROL [Suspect]
     Indication: NON-HODGKIN'S LYMPHOMA
     Dosage: RECEIVED THERAPY IN 1999
     Dates: start: 19990101
  9. PREDNISONE [Concomitant]
     Dosage: 11AUG2008-04DEC1998. ALSO TAKEN IN 1999.
     Dates: start: 19980811

REACTIONS (2)
  - GASTROINTESTINAL NECROSIS [None]
  - OSTEONECROSIS [None]
